FAERS Safety Report 8339044-6 (Version None)
Quarter: 2012Q2

REPORT INFORMATION
  Report Type: 
  Country: None (occurrence: None)
  Receive Date: 20120502
  Receipt Date: 20120419
  Transmission Date: 20120825
  Serious: Yes (Other)
  Sender: FDA-Public Use
  Company Number: 1203-163

PATIENT
  Age: 88 Year
  Sex: Female

DRUGS (2)
  1. EYLEA [Suspect]
     Dosage: INTRAVITREAL
     Dates: start: 20120109
  2. EYLEA [Suspect]

REACTIONS (2)
  - VISUAL ACUITY REDUCED [None]
  - RETINAL DETACHMENT [None]
